FAERS Safety Report 6693739-9 (Version None)
Quarter: 2010Q2

REPORT INFORMATION
  Report Type: 
  Country: None (occurrence: None)
  Receive Date: 20100423
  Receipt Date: 20090713
  Transmission Date: 20101027
  Serious: No
  Sender: FDA-Public Use
  Company Number: A0762850A

PATIENT
  Age: 55 Year
  Sex: Female

DRUGS (11)
  1. DEXEDRINE [Suspect]
     Dosage: 5MG THREE TIMES PER DAY
     Route: 048
  2. DEXTROAMPHETAMINE [Suspect]
     Dosage: 5MG THREE TIMES PER DAY
     Route: 048
  3. LAMICTAL [Concomitant]
  4. GABAPENTIN [Concomitant]
  5. DIAZEPAM [Concomitant]
  6. LORAZEPAM [Concomitant]
  7. GEODON [Concomitant]
  8. ZETIA [Concomitant]
  9. ESTRADIOL [Concomitant]
  10. DEPAKOTE [Concomitant]
  11. AMANTADINE HCL [Concomitant]

REACTIONS (6)
  - AGITATION [None]
  - ANXIETY [None]
  - HYPERTENSION [None]
  - INCORRECT DOSE ADMINISTERED [None]
  - MALAISE [None]
  - UNEVALUABLE EVENT [None]
